FAERS Safety Report 6425162-6 (Version None)
Quarter: 2009Q4

REPORT INFORMATION
  Report Type: 
  Country: None (occurrence: None)
  Receive Date: 20091103
  Receipt Date: 20091005
  Transmission Date: 20100525
  Serious: Yes (Disabling)
  Sender: FDA-Public Use
  Company Number: DE-BAYER-200933788GPV

PATIENT
  Age: 80 Year
  Sex: Male
  Weight: 90 kg

DRUGS (13)
  1. NEXAVAR [Suspect]
     Indication: HEPATIC NEOPLASM MALIGNANT
     Dosage: TOTAL DAILY DOSE: 800 MG
     Route: 048
     Dates: start: 20090922, end: 20090925
  2. NEXAVAR [Suspect]
     Route: 048
     Dates: start: 20090925
  3. ALLOPURINOL [Concomitant]
  4. ENALAPRIL [Concomitant]
  5. HYDROCHLOROTHIAZIDE [Concomitant]
  6. METOPROLOL TARTRATE [Concomitant]
  7. PROSTACURE [Concomitant]
  8. TERAZOSIN HCL [Concomitant]
  9. AVODART [Concomitant]
  10. LEVOTHYROXINE SODIUM [Concomitant]
  11. PANTOPRAZOLE SODIUM [Concomitant]
  12. NOVALGIN [Concomitant]
  13. CLEXANE [Concomitant]

REACTIONS (5)
  - ABASIA [None]
  - ASTHENIA [None]
  - C-REACTIVE PROTEIN INCREASED [None]
  - FATIGUE [None]
  - LIVER FUNCTION TEST ABNORMAL [None]
